FAERS Safety Report 24029049 (Version 1)
Quarter: 2024Q2

REPORT INFORMATION
  Report Type: Spontaneous
  Country: US (occurrence: US)
  Receive Date: 20240628
  Receipt Date: 20240628
  Transmission Date: 20240716
  Serious: Yes (Other)
  Sender: FDA-Public Use
  Company Number: US-BRISTOL-MYERS SQUIBB COMPANY-2024-100014

PATIENT
  Age: 76 Year
  Sex: Female

DRUGS (2)
  1. LENALIDOMIDE [Suspect]
     Active Substance: LENALIDOMIDE
     Indication: Plasma cell myeloma
     Dosage: 2.5MG CAPSULE TAKE 1 CAPSULE FOR 2 DAYS THEN 2 CAPSULES ON THE 3RD DAY REPEAT EVERY 28 DAYS
     Route: 048
     Dates: start: 20240529
  2. REVLIMID [Suspect]
     Active Substance: LENALIDOMIDE
     Indication: Plasma cell myeloma
     Dosage: 2.5MG CAPSULE TAKE 1 CAPSULE FOR 2 DAYS THEN 2 CAPSULES ON THE 3RD DAY REPEAT EVERY 28 DAYS
     Route: 048
     Dates: start: 20200527, end: 20240501

REACTIONS (6)
  - Diarrhoea [Not Recovered/Not Resolved]
  - Fatigue [Not Recovered/Not Resolved]
  - Skin cancer [Not Recovered/Not Resolved]
  - Tooth infection [Not Recovered/Not Resolved]
  - Immunodeficiency [Unknown]
  - Off label use [Unknown]
